FAERS Safety Report 15806812 (Version 1)
Quarter: 2019Q1

REPORT INFORMATION
  Report Type: Spontaneous
  Country: US (occurrence: US)
  Receive Date: 20190110
  Receipt Date: 20190110
  Transmission Date: 20190417
  Serious: Yes (Other)
  Sender: FDA-Public Use
  Company Number: US-ELI_LILLY_AND_COMPANY-US201901001342

PATIENT
  Age: 57 Year
  Sex: Female

DRUGS (1)
  1. TRULICITY [Suspect]
     Active Substance: DULAGLUTIDE
     Indication: BLOOD GLUCOSE ABNORMAL
     Dosage: 0.75 MG, UNKNOWN
     Route: 065
     Dates: start: 20181204, end: 20181204

REACTIONS (1)
  - Blindness [Recovered/Resolved]

NARRATIVE: CASE EVENT DATE: 20181205
